FAERS Safety Report 9229001 (Version 1)
Quarter: 2013Q2

REPORT INFORMATION
  Report Type: Spontaneous
  Country: US (occurrence: US)
  Receive Date: 20130412
  Receipt Date: 20130412
  Transmission Date: 20140414
  Serious: No
  Sender: FDA-Public Use
  Company Number: US-ASTRAZENECA-2013SE20779

PATIENT
  Age: 58 Year
  Sex: Male
  Weight: 63.5 kg

DRUGS (5)
  1. PRILOSEC OTC [Suspect]
     Indication: GASTROOESOPHAGEAL REFLUX DISEASE
     Route: 048
     Dates: start: 2005
  2. PRILOSEC [Suspect]
     Indication: GASTROOESOPHAGEAL REFLUX DISEASE
     Route: 048
  3. PRILOSEC [Suspect]
     Indication: GASTROOESOPHAGEAL REFLUX DISEASE
     Dosage: 20 MG, DAILY, GENERIC
     Route: 048
     Dates: start: 2011
  4. PRILOSEC [Suspect]
     Indication: GASTROOESOPHAGEAL REFLUX DISEASE
     Dosage: 20 MG, TWO TIMES A DAY, GENERIC
     Route: 048
     Dates: start: 201302
  5. LEXOFLOXACIN [Concomitant]
     Indication: PANCREAS INFECTION
     Dates: start: 20130323, end: 20130401

REACTIONS (5)
  - Oesophageal pain [Unknown]
  - Gastrooesophageal reflux disease [Unknown]
  - Oesophageal disorder [Unknown]
  - Pancreas infection [Unknown]
  - Drug ineffective [Unknown]
